FAERS Safety Report 15956903 (Version 3)
Quarter: 2019Q1

REPORT INFORMATION
  Report Type: Spontaneous
  Country: FR (occurrence: FR)
  Receive Date: 20190213
  Receipt Date: 20190319
  Transmission Date: 20190417
  Serious: Yes (Other)
  Sender: FDA-Public Use
  Company Number: PHHY2019FR032776

PATIENT
  Age: 1 Month
  Sex: Male
  Weight: 5.4 kg

DRUGS (4)
  1. PROGLYCEM [Concomitant]
     Active Substance: DIAZOXIDE
     Indication: HYPERINSULINISM
     Dosage: 50 MG/ML, QD
     Route: 048
     Dates: start: 201808
  2. LASILIX [Concomitant]
     Active Substance: FUROSEMIDE
     Indication: PULMONARY HYPERTENSION
     Dosage: 3 MG, QD
     Route: 065
     Dates: start: 20180927, end: 20181027
  3. SIGNIFOR [Suspect]
     Active Substance: PASIREOTIDE
     Indication: HYPERINSULINISM
     Dosage: 0.13 ML, Q12H AND 0.9 MG/ML
     Route: 058
     Dates: start: 20180927
  4. ZYMAD [Concomitant]
     Active Substance: CHOLECALCIFEROL
     Indication: GOUT
     Dosage: 3 DRP, UNK
     Route: 065
     Dates: start: 201808

REACTIONS (10)
  - Dysphagia [Unknown]
  - Needle issue [Unknown]
  - Food refusal [Unknown]
  - Abdominal pain [Unknown]
  - Product use in unapproved indication [Unknown]
  - Decreased appetite [Unknown]
  - Product use issue [Unknown]
  - Hypoglycaemia [Unknown]
  - Diarrhoea [Recovered/Resolved]
  - Product storage error [Unknown]

NARRATIVE: CASE EVENT DATE: 20180927
